FAERS Safety Report 11930924 (Version 1)
Quarter: 2016Q1

REPORT INFORMATION
  Report Type: Spontaneous
  Country: US (occurrence: US)
  Receive Date: 20160120
  Receipt Date: 20160120
  Transmission Date: 20160526
  Serious: No
  Sender: FDA-Public Use
  Company Number: US-INCYTE CORPORATION-2015IN004063

PATIENT
  Age: 91 Year
  Sex: Male

DRUGS (12)
  1. JAKAFI [Suspect]
     Active Substance: RUXOLITINIB
     Dosage: 10 MG, BID
     Route: 048
     Dates: start: 20150729, end: 201508
  2. VENLAFAXINE [Concomitant]
     Active Substance: VENLAFAXINE HYDROCHLORIDE
  3. PROBIOTIC                          /06395501/ [Concomitant]
     Active Substance: BIFIDOBACTERIUM ANIMALIS SUBSP. LACTIS
  4. TYLENOL [Concomitant]
     Active Substance: ACETAMINOPHEN
  5. ROPINIROLE. [Concomitant]
     Active Substance: ROPINIROLE
  6. OMEPRAZOLE. [Concomitant]
     Active Substance: OMEPRAZOLE
  7. FUROSEMIDE. [Concomitant]
     Active Substance: FUROSEMIDE
  8. SPIRONOLACTONE. [Concomitant]
     Active Substance: SPIRONOLACTONE
  9. PRIMIDONE. [Concomitant]
     Active Substance: PRIMIDONE
  10. ALLOPURINOL. [Concomitant]
     Active Substance: ALLOPURINOL
  11. COUMADIN [Concomitant]
     Active Substance: WARFARIN SODIUM
  12. HYDREA [Concomitant]
     Active Substance: HYDROXYUREA

REACTIONS (8)
  - Red blood cell count decreased [Unknown]
  - Somnolence [Unknown]
  - Decreased appetite [Unknown]
  - Weight decreased [Unknown]
  - Body temperature increased [Unknown]
  - Muscle atrophy [Unknown]
  - White blood cell count increased [Unknown]
  - Neuralgia [Unknown]

NARRATIVE: CASE EVENT DATE: 201508
